FAERS Safety Report 24295443 (Version 1)
Quarter: 2024Q3

REPORT INFORMATION
  Report Type: Spontaneous
  Country: RU (occurrence: RU)
  Receive Date: 20240908
  Receipt Date: 20240908
  Transmission Date: 20241017
  Serious: Yes (Other)
  Sender: DR REDDYS
  Company Number: RU-RZN-SPO/RUS/24/0012701

PATIENT
  Age: 17 Year
  Sex: Female
  Weight: 82 kg

DRUGS (5)
  1. LEVOCETIRIZINE DIHYDROCHLORIDE [Suspect]
     Active Substance: LEVOCETIRIZINE DIHYDROCHLORIDE
     Indication: Suicide attempt
     Dosage: TOOK 11 TABLETS
     Route: 048
     Dates: start: 20240827, end: 20240827
  2. ACETAMINOPHEN [Suspect]
     Active Substance: ACETAMINOPHEN
     Indication: Suicide attempt
     Dosage: 14 TABLETS .
     Route: 048
     Dates: start: 20240827, end: 20240827
  3. ASPIRIN [Suspect]
     Active Substance: ASPIRIN
     Indication: Suicide attempt
     Dosage: 4 TABLETS.
     Route: 048
     Dates: start: 20240827, end: 20240827
  4. MEGLUMINE [Suspect]
     Active Substance: MEGLUMINE
     Indication: Suicide attempt
     Dosage: 10 TABLETS.
     Route: 048
     Dates: start: 20240827, end: 20240827
  5. HOMEOPATHICS [Suspect]
     Active Substance: HOMEOPATHICS
     Indication: Suicide attempt
     Dosage: 6 RENGALIN TABLETS
     Route: 048
     Dates: start: 20240827, end: 20240827

REACTIONS (2)
  - Suicide attempt [Recovered/Resolved]
  - Vomiting [Unknown]

NARRATIVE: CASE EVENT DATE: 20240827
